FAERS Safety Report 17826416 (Version 1)
Quarter: 2020Q2

REPORT INFORMATION
  Report Type: Spontaneous
  Country: US (occurrence: US)
  Receive Date: 20200526
  Receipt Date: 20200526
  Transmission Date: 20200714
  Serious: Yes (Hospitalization, Other)
  Sender: FDA-Public Use
  Company Number: US-NAPPMUNDI-USA-2020-0152452

PATIENT
  Age: 0 Day
  Sex: Female
  Weight: 15.42 kg

DRUGS (1)
  1. OXYCONTIN [Suspect]
     Active Substance: OXYCODONE HYDROCHLORIDE
     Indication: PRODUCT USED FOR UNKNOWN INDICATION
     Dosage: 80 MG, UNK
     Route: 065

REACTIONS (28)
  - Anal atresia [Unknown]
  - Gastrooesophageal reflux disease [Unknown]
  - Hospitalisation [Unknown]
  - Spina bifida [Unknown]
  - Brain injury [Unknown]
  - Oesophagogastric fundoplasty [Unknown]
  - Cardiac disorder [Unknown]
  - Developmental delay [Unknown]
  - Cyst removal [Unknown]
  - Deafness [Unknown]
  - Underweight [Unknown]
  - Intellectual disability [Unknown]
  - Cardiac murmur [Unknown]
  - Nothing by mouth order [Unknown]
  - Drug dependence [Unknown]
  - Catheterisation cardiac [Unknown]
  - Learning disability [Unknown]
  - Foot deformity [Unknown]
  - Diarrhoea [Unknown]
  - Congenital anomaly [Unknown]
  - Unevaluable event [Unknown]
  - Maternal exposure during pregnancy [Unknown]
  - Brain malformation [Unknown]
  - Immobile [Unknown]
  - Selective eating disorder [Unknown]
  - Vomiting [Unknown]
  - Kidney malformation [Unknown]
  - Disability [Unknown]

NARRATIVE: CASE EVENT DATE: 20130219
